FAERS Safety Report 9204361 (Version 2)
Quarter: 2013Q2

REPORT INFORMATION
  Report Type: Spontaneous
  Country: US (occurrence: US)
  Receive Date: 20130402
  Receipt Date: 20130416
  Transmission Date: 20140414
  Serious: Yes (Hospitalization)
  Sender: FDA-Public Use
  Company Number: US-BAYER-2013-038865

PATIENT
  Age: 23 Year
  Sex: Female
  Weight: 111.57 kg

DRUGS (17)
  1. YAZ [Suspect]
  2. YASMIN [Suspect]
  3. PREDNISONE [Concomitant]
     Dosage: 20 MG, UNK
     Route: 048
     Dates: start: 20120119
  4. ALBUTEROL [Concomitant]
     Dosage: UNK,
     Route: 048
     Dates: start: 20120109
  5. FLUTICASONE [Concomitant]
     Dosage: UNK
     Route: 045
     Dates: start: 20120109
  6. ADVAIR [Concomitant]
     Dosage: UNK,
     Route: 048
     Dates: start: 20120109
  7. AZITHROMYCIN [Concomitant]
     Dosage: UNK
     Route: 048
     Dates: start: 20111228
  8. OMEPRAZOLE [Concomitant]
     Dosage: 20 MG, UNK
     Route: 048
     Dates: start: 20120109
  9. FLUCONAZOLE [Concomitant]
     Dosage: 150 MG, UNK
     Route: 048
     Dates: start: 20120117
  10. DULERA [Concomitant]
  11. METFORMIN [Concomitant]
     Indication: DIABETES MELLITUS
  12. GLIPIZIDE [Concomitant]
     Indication: DIABETES MELLITUS
  13. INSULIN [Concomitant]
     Indication: DIABETES MELLITUS
  14. CEFTIN [Concomitant]
  15. DOXYCYCLINE [Concomitant]
  16. ACETAMINOPHEN W/OXYCODONE [Concomitant]
  17. MELOXICAM [Concomitant]
     Indication: PAIN

REACTIONS (4)
  - Pulmonary embolism [None]
  - Injury [None]
  - Pain [None]
  - Pain [None]
